FAERS Safety Report 8278715-7 (Version None)
Quarter: 2012Q2

REPORT INFORMATION
  Report Type: 
  Country: None (occurrence: None)
  Receive Date: 20120412
  Receipt Date: 20110502
  Transmission Date: 20120825
  Serious: No
  Sender: FDA-Public Use
  Company Number: US-ASTRAZENECA-2011SE25808

PATIENT
  Age: 49 Year
  Sex: Female

DRUGS (1)
  1. NEXIUM [Suspect]
     Route: 048
     Dates: start: 20040101

REACTIONS (4)
  - CHOKING [None]
  - THROAT IRRITATION [None]
  - DRUG DOSE OMISSION [None]
  - X-RAY WITH CONTRAST UPPER GASTROINTESTINAL TRACT [None]
